FAERS Safety Report 11748673 (Version 2)
Quarter: 2016Q3

REPORT INFORMATION
  Report Type: Spontaneous
  Country: US (occurrence: US)
  Receive Date: 20151117
  Receipt Date: 20160720
  Transmission Date: 20161109
  Serious: No
  Sender: FDA-Public Use
  Company Number: US-MYLANLABS-2015M1039970

PATIENT

DRUGS (6)
  1. DESVENLAFAXINE. [Concomitant]
     Active Substance: DESVENLAFAXINE
     Indication: MAJOR DEPRESSION
     Route: 065
  2. DOXAZOSIN [Concomitant]
     Active Substance: DOXAZOSIN\DOXAZOSIN MESYLATE
     Indication: MAJOR DEPRESSION
     Route: 065
  3. LEVOMEFOLIC ACID [Concomitant]
     Active Substance: LEVOMEFOLIC ACID
     Indication: MAJOR DEPRESSION
     Route: 065
  4. HYDROXYZINE [Concomitant]
     Active Substance: HYDROXYZINE\HYDROXYZINE HYDROCHLORIDE
     Indication: MAJOR DEPRESSION
     Route: 065
  5. KETAMINE [Suspect]
     Active Substance: KETAMINE
     Indication: MAJOR DEPRESSION
     Dosage: 0.5 MG/KG, UNK
     Route: 050
     Dates: start: 201208
  6. FISH OIL [Concomitant]
     Active Substance: FISH OIL
     Indication: MAJOR DEPRESSION
     Route: 065

REACTIONS (2)
  - No adverse event [Unknown]
  - Off label use [Unknown]
